FAERS Safety Report 14469754 (Version 3)
Quarter: 2020Q2

REPORT INFORMATION
  Report Type: Spontaneous
  Country: JP (occurrence: JP)
  Receive Date: 20180131
  Receipt Date: 20200403
  Transmission Date: 20200713
  Serious: Yes (Other)
  Sender: FDA-Public Use
  Company Number: PHJP2016JP035990

PATIENT
  Age: 64 Year
  Sex: Male

DRUGS (8)
  1. FLUORESCEIN SODIUM. [Suspect]
     Active Substance: FLUORESCEIN SODIUM
     Indication: ANGIOGRAM RETINA
     Dosage: UNK
     Route: 065
  2. EYLEA [Suspect]
     Active Substance: AFLIBERCEPT
     Indication: POLYPOIDAL CHOROIDAL VASCULOPATHY
     Dosage: UNK
     Route: 065
  3. LUCENTIS [Suspect]
     Active Substance: RANIBIZUMAB
     Indication: POLYPOIDAL CHOROIDAL VASCULOPATHY
     Dosage: UNK
     Route: 031
  4. VISUDYNE [Suspect]
     Active Substance: VERTEPORFIN
     Indication: POLYPOIDAL CHOROIDAL VASCULOPATHY
     Dosage: UNK
     Route: 042
  5. INDOCYANINE GREEN. [Suspect]
     Active Substance: INDOCYANINE GREEN
     Indication: ANGIOGRAM RETINA
     Dosage: UNK
     Route: 065
  6. VISUDYNE [Suspect]
     Active Substance: VERTEPORFIN
     Indication: AGE-RELATED MACULAR DEGENERATION
  7. LUCENTIS [Suspect]
     Active Substance: RANIBIZUMAB
     Indication: AGE-RELATED MACULAR DEGENERATION
  8. EYLEA [Suspect]
     Active Substance: AFLIBERCEPT
     Indication: AGE-RELATED MACULAR DEGENERATION

REACTIONS (9)
  - Contrast media allergy [Unknown]
  - Urticaria [Unknown]
  - Therapy non-responder [Unknown]
  - Cataract [Unknown]
  - Disease progression [Unknown]
  - Age-related macular degeneration [Unknown]
  - Visual acuity reduced [Unknown]
  - Retinal scar [Unknown]
  - Off label use [Unknown]

NARRATIVE: CASE EVENT DATE: 20151126
